FAERS Safety Report 10593296 (Version 1)
Quarter: 2014Q4

REPORT INFORMATION
  Report Type: Spontaneous
  Country: US (occurrence: US)
  Receive Date: 20141119
  Receipt Date: 20141119
  Transmission Date: 20150529
  Serious: No
  Sender: FDA-Public Use
  Company Number: US-EISAI MEDICAL RESEARCH-EC-2014-001529

PATIENT
  Sex: Male

DRUGS (3)
  1. DONEPEZIL [Suspect]
     Active Substance: DONEPEZIL
     Route: 048
     Dates: start: 201411
  2. DONEPEZIL [Suspect]
     Active Substance: DONEPEZIL
     Indication: DEMENTIA ALZHEIMER^S TYPE
     Route: 048
     Dates: start: 2006, end: 201403
  3. DONEPEZIL [Suspect]
     Active Substance: DONEPEZIL
     Route: 048
     Dates: start: 201403, end: 201411

REACTIONS (2)
  - Cognitive disorder [Unknown]
  - Weight decreased [Unknown]

NARRATIVE: CASE EVENT DATE: 2014
